FAERS Safety Report 7329376-2 (Version None)
Quarter: 2011Q1

REPORT INFORMATION
  Report Type: 
  Country: None (occurrence: None)
  Receive Date: 20110303
  Receipt Date: 20110222
  Transmission Date: 20110831
  Serious: Yes (Other)
  Sender: FDA-Public Use
  Company Number: CH-ASTRAZENECA-2011SE10400

PATIENT
  Sex: Male

DRUGS (2)
  1. SEROQUEL [Suspect]
     Route: 048
     Dates: start: 20080224
  2. EFFEXOR [Suspect]
     Route: 048
     Dates: start: 20080224

REACTIONS (2)
  - TRANSAMINASES INCREASED [None]
  - BLOOD PROLACTIN INCREASED [None]
